FAERS Safety Report 5950346-0 (Version None)
Quarter: 2008Q4

REPORT INFORMATION
  Report Type: 
  Country: None (occurrence: None)
  Receive Date: 20081112
  Receipt Date: 20081104
  Transmission Date: 20090506
  Serious: Yes (Other)
  Sender: FDA-Public Use
  Company Number: PHHY2008SE27164

PATIENT
  Age: 72 Year
  Sex: Male

DRUGS (1)
  1. ZOMETA [Suspect]
     Dosage: UNK
     Dates: end: 20080828

REACTIONS (5)
  - ASTHENIA [None]
  - C-REACTIVE PROTEIN INCREASED [None]
  - DIZZINESS [None]
  - HYPOCALCAEMIA [None]
  - PYREXIA [None]
